FAERS Safety Report 24425910 (Version 1)
Quarter: 2024Q4

REPORT INFORMATION
  Report Type: Spontaneous
  Country: BG (occurrence: BG)
  Receive Date: 20241011
  Receipt Date: 20241011
  Transmission Date: 20250114
  Serious: Yes (Death)
  Sender: ROCHE
  Company Number: BG-ROCHE-10000101291

PATIENT
  Age: 56 Year
  Sex: Male

DRUGS (6)
  1. POLIVY [Suspect]
     Active Substance: POLATUZUMAB VEDOTIN-PIIQ
     Indication: Diffuse large B-cell lymphoma
     Route: 042
     Dates: start: 20231222
  2. RITUXIMAB [Suspect]
     Active Substance: RITUXIMAB
     Indication: Diffuse large B-cell lymphoma
     Route: 042
     Dates: start: 20231222
  3. CYCLOPHOSPHAMIDE [Concomitant]
     Active Substance: CYCLOPHOSPHAMIDE
     Indication: Diffuse large B-cell lymphoma
     Route: 042
     Dates: start: 20231222
  4. PREDNISONE [Concomitant]
     Active Substance: PREDNISONE
     Indication: Diffuse large B-cell lymphoma
     Route: 042
     Dates: start: 20231222
  5. DOXORUBICIN HYDROCHLORIDE [Concomitant]
     Active Substance: DOXORUBICIN HYDROCHLORIDE
     Indication: Diffuse large B-cell lymphoma
     Route: 042
     Dates: start: 20231222
  6. VINCRISTINE SULFATE [Concomitant]
     Active Substance: VINCRISTINE SULFATE
     Indication: Diffuse large B-cell lymphoma
     Route: 042
     Dates: start: 20231222

REACTIONS (1)
  - Acute respiratory failure [Fatal]

NARRATIVE: CASE EVENT DATE: 20240108
